FAERS Safety Report 9751601 (Version 2)
Quarter: 2013Q4

REPORT INFORMATION
  Report Type: Spontaneous
  Country: FR (occurrence: FR)
  Receive Date: 20131212
  Receipt Date: 20131212
  Transmission Date: 20140711
  Serious: Yes (Other)
  Sender: FDA-Public Use
  Company Number: FR-ABBVIE-13P-056-1158436-00

PATIENT
  Age: 75 Year
  Sex: Female

DRUGS (2)
  1. DEPAKOTE [Suspect]
     Indication: ABNORMAL BEHAVIOUR
     Dosage: TWICE A DAY
     Route: 048
     Dates: start: 2005, end: 20070722
  2. DEPAKOTE [Suspect]
     Indication: DEPRESSION
     Route: 048
     Dates: start: 20070723, end: 20080221

REACTIONS (2)
  - Off label use [Unknown]
  - Parkinsonism [Recovered/Resolved]
